FAERS Safety Report 5847839-3 (Version None)
Quarter: 2008Q3

REPORT INFORMATION
  Report Type: 
  Country: None (occurrence: None)
  Receive Date: 20080814
  Receipt Date: 20080814
  Transmission Date: 20090109
  Serious: Yes (Hospitalization)
  Sender: FDA-Public Use
  Company Number: None

PATIENT
  Age: 47 Year
  Sex: Male
  Weight: 149 kg

DRUGS (11)
  1. ZOSYN [Suspect]
     Indication: CELLULITIS
     Dosage: IV, 2 DAYS
     Route: 042
  2. LISINOPRIL [Concomitant]
  3. METPROLOL [Concomitant]
  4. FELODIPINE [Concomitant]
  5. PLAVIX [Concomitant]
  6. ISOSORBIDE MONONITRATE [Concomitant]
  7. ASPIRIN [Concomitant]
  8. METFORMIN HCL [Concomitant]
  9. LANTUS [Concomitant]
  10. EFFEXOR [Concomitant]
  11. HUMALOG [Concomitant]

REACTIONS (1)
  - JAUNDICE CHOLESTATIC [None]
